FAERS Safety Report 4778171-7 (Version None)
Quarter: 2005Q3

REPORT INFORMATION
  Report Type: 
  Country: None (occurrence: None)
  Receive Date: 20050923
  Receipt Date: 20050923
  Transmission Date: 20060218
  Serious: Yes (Other)
  Sender: FDA-Public Use
  Company Number: None

PATIENT
  Age: 67 Year
  Sex: Male
  Weight: 90.3 kg

DRUGS (12)
  1. FLUNISOLIDE [Suspect]
  2. FOSINOPRIL [Concomitant]
  3. ASPIRIN [Concomitant]
  4. GLYBURIDE [Concomitant]
  5. METFORMIN HCL [Concomitant]
  6. OMEPRAZOLE [Concomitant]
  7. SIMVASTATIN [Concomitant]
  8. ROSIGLITAZONE MALEATE [Concomitant]
  9. ATENOLOL [Concomitant]
  10. LORATADINE [Concomitant]
  11. METOCLOPRAMIDE HCL [Concomitant]
  12. CAPSAICIN [Concomitant]

REACTIONS (1)
  - HEADACHE [None]
